FAERS Safety Report 17220104 (Version 1)
Quarter: 2019Q4

REPORT INFORMATION
  Report Type: Spontaneous
  Country: ES (occurrence: ES)
  Receive Date: 20191231
  Receipt Date: 20191231
  Transmission Date: 20200122
  Serious: Yes (Hospitalization)
  Sender: FDA-Public Use
  Company Number: ES-GLAXOSMITHKLINE-ES2019235756

PATIENT
  Age: 63 Year
  Sex: Male
  Weight: 85 kg

DRUGS (3)
  1. REQUIP-PROLIB [Interacting]
     Active Substance: ROPINIROLE HYDROCHLORIDE
     Dosage: 12 MG, QD
     Route: 048
     Dates: start: 20191110, end: 20191124
  2. REQUIP-PROLIB [Interacting]
     Active Substance: ROPINIROLE HYDROCHLORIDE
     Dosage: 14 MG/ 24H
     Route: 048
     Dates: start: 20191125, end: 20191128
  3. REQUIP-PROLIB [Suspect]
     Active Substance: ROPINIROLE HYDROCHLORIDE
     Indication: PARKINSON^S DISEASE
     Dosage: ASCENDING DOSE FROM 2 MG / DAY TO 10 MG / DAY
     Route: 048
     Dates: start: 20190815, end: 20191109

REACTIONS (1)
  - Aphasia [Recovered/Resolved]

NARRATIVE: CASE EVENT DATE: 20191128
